FAERS Safety Report 5675326-4 (Version None)
Quarter: 2008Q2

REPORT INFORMATION
  Report Type: 
  Country: None (occurrence: None)
  Receive Date: 20080307
  Receipt Date: 20071025
  Transmission Date: 20081010
  Serious: Yes (Other)
  Sender: FDA-Public Use
  Company Number: US200707000384

PATIENT
  Age: 78 Year
  Sex: Female

DRUGS (1)
  1. GEMZAR [Suspect]
     Indication: BILE DUCT CANCER
     Dosage: 1400 D/F, OTHER
     Route: 050
     Dates: start: 20070312, end: 20070416

REACTIONS (1)
  - PULMONARY FIBROSIS [None]
